FAERS Safety Report 15806292 (Version 4)
Quarter: 2019Q1

REPORT INFORMATION
  Report Type: Spontaneous
  Country: US (occurrence: US)
  Receive Date: 20190110
  Receipt Date: 20190221
  Transmission Date: 20190417
  Serious: No
  Sender: FDA-Public Use
  Company Number: US-PFIZER INC-2018391457

PATIENT
  Age: 5 Year
  Sex: Male
  Weight: 13.1 kg

DRUGS (2)
  1. GENOTROPIN [Suspect]
     Active Substance: SOMATROPIN
     Indication: SILVER-RUSSELL SYNDROME
     Dosage: 0.5 MG, ONCE DAILY
     Route: 058
     Dates: start: 201811
  2. GENOTROPIN [Suspect]
     Active Substance: SOMATROPIN
     Indication: GROWTH HORMONE DEFICIENCY
     Dosage: 0.4 MG, DAILY
     Dates: start: 20181202

REACTIONS (5)
  - Blood creatinine decreased [Unknown]
  - Headache [Recovered/Resolved]
  - Blood chloride increased [Unknown]
  - Eosinophil count increased [Unknown]
  - Blood glucose increased [Unknown]

NARRATIVE: CASE EVENT DATE: 20181213
